FAERS Safety Report 14723817 (Version 2)
Quarter: 2018Q4

REPORT INFORMATION
  Report Type: Spontaneous
  Country: US (occurrence: US)
  Receive Date: 20180405
  Receipt Date: 20181101
  Transmission Date: 20190204
  Serious: Yes (Other)
  Sender: FDA-Public Use
  Company Number: PHEH2018US013093

PATIENT
  Sex: Female

DRUGS (1)
  1. TYKERB [Suspect]
     Active Substance: LAPATINIB DITOSYLATE
     Indication: BREAST CANCER FEMALE
     Dosage: 5 DF, QD (FOR 21 DAYS) (1250 MG QD)
     Route: 048
     Dates: start: 20180201, end: 201808

REACTIONS (4)
  - Pruritus [Unknown]
  - Malignant neoplasm progression [Unknown]
  - Breast cancer female [Unknown]
  - Diarrhoea [Unknown]
